FAERS Safety Report 15431018 (Version 5)
Quarter: 2018Q4

REPORT INFORMATION
  Report Type: Report from Study
  Country: PT (occurrence: PT)
  Receive Date: 20180926
  Receipt Date: 20181121
  Transmission Date: 20190204
  Serious: Yes (Life-Threatening, Other)
  Sender: FDA-Public Use
  Company Number: PT-VIIV HEALTHCARE LIMITED-PT2018172072

PATIENT
  Age: 35 Year
  Sex: Male

DRUGS (40)
  1. SERTRALINE [Suspect]
     Active Substance: SERTRALINE HYDROCHLORIDE
     Indication: HEPATITIS C
     Dosage: 1 ML OF TRIAMCINOLONE 40 MG INJECTED
     Route: 065
  2. EMTRICITABINE/TENOFOVIR DISOPROXIL FUMARATE [Suspect]
     Active Substance: EMTRICITABINE\TENOFOVIR DISOPROXIL FUMARATE
     Indication: HIV INFECTION
  3. METHADONE [Suspect]
     Active Substance: METHADONE HYDROCHLORIDE
     Indication: HIV INFECTION
  4. VENLAFAXINE [Suspect]
     Active Substance: VENLAFAXINE HYDROCHLORIDE
     Indication: HEPATITIS C
     Dosage: 1 ML OF TRIAMCINOLONE 40 MG INJECTED
     Route: 065
  5. TIAPRIDE [Suspect]
     Active Substance: TIAPRIDE
     Indication: HEPATITIS C
     Dosage: 1 ML OF TRIAMCINOLONE 40 MG INJECTED
     Route: 065
  6. EMTRICITABINE/TENOFOVIR DISOPROXIL FUMARATE [Suspect]
     Active Substance: EMTRICITABINE\TENOFOVIR DISOPROXIL FUMARATE
     Indication: CHRONIC HEPATITIS C
  7. ZIDOVUDINE. [Suspect]
     Active Substance: ZIDOVUDINE
     Indication: ANTIRETROVIRAL THERAPY
  8. OLANZAPINE. [Suspect]
     Active Substance: OLANZAPINE
     Indication: CHRONIC HEPATITIS C
  9. QUETIAPINE. [Suspect]
     Active Substance: QUETIAPINE
     Indication: HEPATITIS C
     Dosage: 1 ML OF TRIAMCINOLONE 40 MG INJECTED
     Route: 065
  10. SERTRALINE [Suspect]
     Active Substance: SERTRALINE HYDROCHLORIDE
     Indication: HIV INFECTION
  11. SERTRALINE [Suspect]
     Active Substance: SERTRALINE HYDROCHLORIDE
     Indication: CHRONIC HEPATITIS C
  12. TRAZODONE [Suspect]
     Active Substance: TRAZODONE HYDROCHLORIDE
     Indication: CHRONIC HEPATITIS C
  13. LOPINAVIR+RITONAVIR [Suspect]
     Active Substance: LOPINAVIR\RITONAVIR
     Indication: CHRONIC HEPATITIS C
  14. OLANZAPINE. [Suspect]
     Active Substance: OLANZAPINE
     Indication: HIV INFECTION
  15. METHADONE [Suspect]
     Active Substance: METHADONE HYDROCHLORIDE
     Indication: CHRONIC HEPATITIS C
  16. QUETIAPINE. [Suspect]
     Active Substance: QUETIAPINE
     Indication: CHRONIC HEPATITIS C
  17. VENLAFAXINE [Suspect]
     Active Substance: VENLAFAXINE HYDROCHLORIDE
     Indication: HIV INFECTION
  18. TIAPRIDE [Suspect]
     Active Substance: TIAPRIDE
     Indication: CHRONIC HEPATITIS C
  19. MIRTAZAPINE. [Suspect]
     Active Substance: MIRTAZAPINE
     Indication: HIV INFECTION
  20. LOPINAVIR+RITONAVIR [Suspect]
     Active Substance: LOPINAVIR\RITONAVIR
     Indication: HIV INFECTION
  21. ZIDOVUDINE. [Suspect]
     Active Substance: ZIDOVUDINE
     Indication: HEPATITIS C
     Dosage: ML OF TRIAMCINOLONE 40 MG INJECTED
     Route: 065
  22. ZIDOVUDINE. [Suspect]
     Active Substance: ZIDOVUDINE
     Indication: CHRONIC HEPATITIS C
  23. LAMIVUDINE. [Suspect]
     Active Substance: LAMIVUDINE
     Indication: HIV INFECTION
  24. METHADONE [Suspect]
     Active Substance: METHADONE HYDROCHLORIDE
     Indication: HEPATITIS C
     Dosage: 1 ML OF TRIAMCINOLONE 40 MG INJECTED
     Route: 065
  25. ALCOHOL. [Suspect]
     Active Substance: ALCOHOL
     Indication: PRODUCT USED FOR UNKNOWN INDICATION
     Dosage: UNKNOWN DOSE
     Route: 065
  26. EMTRICITABINE/TENOFOVIR DISOPROXIL FUMARATE [Suspect]
     Active Substance: EMTRICITABINE\TENOFOVIR DISOPROXIL FUMARATE
     Indication: HEPATITIS C
     Dosage: 1 ML OF TRIAMCINOLONE 40 MG INJECTED
     Route: 065
  27. LOPINAVIR+RITONAVIR [Suspect]
     Active Substance: LOPINAVIR\RITONAVIR
     Indication: HEPATITIS C
     Dosage: 1 ML OF TRIAMCINOLONE 40 MG INJECTED
     Route: 065
  28. LAMIVUDINE. [Suspect]
     Active Substance: LAMIVUDINE
     Indication: CHRONIC HEPATITIS C
  29. TIAPRIDE [Suspect]
     Active Substance: TIAPRIDE
     Indication: HIV INFECTION
  30. TRAZODONE [Suspect]
     Active Substance: TRAZODONE HYDROCHLORIDE
     Indication: HEPATITIS C
     Dosage: 1 ML OF TRIAMCINOLONE 40 MG INJECTED
     Route: 065
  31. MIRTAZAPINE. [Suspect]
     Active Substance: MIRTAZAPINE
     Indication: CHRONIC HEPATITIS C
  32. ZIDOVUDINE. [Suspect]
     Active Substance: ZIDOVUDINE
     Indication: HIV INFECTION
  33. OLANZAPINE. [Suspect]
     Active Substance: OLANZAPINE
     Indication: HEPATITIS C
     Dosage: 1 ML OF TRIAMCINOLONE 40 MG INJECTED
     Route: 065
  34. VENLAFAXINE [Suspect]
     Active Substance: VENLAFAXINE HYDROCHLORIDE
     Indication: CHRONIC HEPATITIS C
  35. TIAPRIDE [Suspect]
     Active Substance: TIAPRIDE
     Indication: ANTIRETROVIRAL THERAPY
  36. TRAZODONE [Suspect]
     Active Substance: TRAZODONE HYDROCHLORIDE
     Indication: HIV INFECTION
  37. LAMIVUDINE. [Suspect]
     Active Substance: LAMIVUDINE
     Indication: HEPATITIS C
     Dosage: 1 ML OF TRIAMCINOLONE 40 MG INJECTED
     Route: 065
  38. LAMIVUDINE. [Suspect]
     Active Substance: LAMIVUDINE
     Indication: ANTIRETROVIRAL THERAPY
  39. QUETIAPINE. [Suspect]
     Active Substance: QUETIAPINE
     Indication: HIV INFECTION
  40. MIRTAZAPINE. [Suspect]
     Active Substance: MIRTAZAPINE
     Indication: HEPATITIS C
     Dosage: 1 ML OF TRIAMCINOLONE 40 MG INJECTED
     Route: 065

REACTIONS (2)
  - Hepatic fibrosis [Unknown]
  - Drug-induced liver injury [Unknown]
